FAERS Safety Report 17229358 (Version 1)
Quarter: 2020Q1

REPORT INFORMATION
  Report Type: Spontaneous
  Country: US (occurrence: US)
  Receive Date: 20200102
  Receipt Date: 20200102
  Transmission Date: 20200409
  Serious: No
  Sender: FDA-Public Use
  Company Number: None

PATIENT
  Age: 34 Year
  Sex: Female
  Weight: 67.5 kg

DRUGS (2)
  1. CLONAZEPAM 0.5 MG TABLET GENERIC FOR KLONOPIN SOLCO HEALTHCARE [Suspect]
     Active Substance: CLONAZEPAM
     Indication: ANXIETY DISORDER
     Dosage: ?          QUANTITY:30 TABLET(S);?
     Route: 048
     Dates: start: 20191231
  2. CLONAZEPAM 0.5 MG TABLET GENERIC FOR KLONOPIN SOLCO HEALTHCARE [Suspect]
     Active Substance: CLONAZEPAM
     Indication: PANIC DISORDER
     Dosage: ?          QUANTITY:30 TABLET(S);?
     Route: 048
     Dates: start: 20191231

REACTIONS (7)
  - Asthenia [None]
  - Product substitution issue [None]
  - Heart rate increased [None]
  - Anxiety [None]
  - Panic reaction [None]
  - Irritability [None]
  - Product measured potency issue [None]

NARRATIVE: CASE EVENT DATE: 20200102
